FAERS Safety Report 20745790 (Version 3)
Quarter: 2024Q2

REPORT INFORMATION
  Report Type: Report from Study
  Country: JP (occurrence: JP)
  Receive Date: 20220425
  Receipt Date: 20240425
  Transmission Date: 20240716
  Serious: Yes (Hospitalization)
  Sender: FDA-Public Use
  Company Number: JP-GILEAD-2021-0526356

PATIENT
  Age: 4 Decade
  Sex: Male

DRUGS (1)
  1. BICTEGRAVIR\EMTRICITABINE\TENOFOVIR ALAFENAMIDE [Suspect]
     Active Substance: BICTEGRAVIR\EMTRICITABINE\TENOFOVIR ALAFENAMIDE
     Indication: HIV infection
     Dosage: 1 DOSAGE FORM, QD
     Route: 048
     Dates: start: 20200303

REACTIONS (9)
  - Appendicitis [Recovering/Resolving]
  - Sinusitis [Recovering/Resolving]
  - Sinusitis [Recovering/Resolving]
  - Hyperuricaemia [Not Recovered/Not Resolved]
  - Acne [Not Recovered/Not Resolved]
  - Prostatitis [Recovering/Resolving]
  - Rhinitis [Recovering/Resolving]
  - Intervertebral disc protrusion [Not Recovered/Not Resolved]
  - Seborrhoeic dermatitis [Not Recovered/Not Resolved]

NARRATIVE: CASE EVENT DATE: 20200511
